FAERS Safety Report 5708950-0 (Version None)
Quarter: 2008Q2

REPORT INFORMATION
  Report Type: 
  Country: None (occurrence: None)
  Receive Date: 20080414
  Receipt Date: 20080414
  Transmission Date: 20081010
  Serious: No
  Sender: FDA-Public Use
  Company Number: None

PATIENT
  Sex: Female
  Weight: 23.587 kg

DRUGS (1)
  1. SINGULAIR [Suspect]
     Indication: RHINITIS ALLERGIC
     Dosage: 4MG 1 PER DAY @ NIGHT PO
     Route: 048
     Dates: start: 20070501, end: 20080101

REACTIONS (13)
  - ABDOMINAL PAIN UPPER [None]
  - ABNORMAL DREAMS [None]
  - ARTHRALGIA [None]
  - BRUXISM [None]
  - CRYING [None]
  - DYSPNOEA [None]
  - MOOD SWINGS [None]
  - PAIN [None]
  - PANIC ATTACK [None]
  - PRURITUS [None]
  - SELF ESTEEM DECREASED [None]
  - SLEEP DISORDER [None]
  - UNEVALUABLE EVENT [None]
